FAERS Safety Report 6810122-3 (Version None)
Quarter: 2010Q2

REPORT INFORMATION
  Report Type: 
  Country: None (occurrence: None)
  Receive Date: 20100630
  Receipt Date: 20100621
  Transmission Date: 20101027
  Serious: Yes (Other)
  Sender: FDA-Public Use
  Company Number: JP-ROCHE-711815

PATIENT
  Age: 60 Year
  Sex: Male

DRUGS (1)
  1. XELODA [Suspect]
     Indication: COLON CANCER
     Dosage: DRUG REPORTED AS XELODA 300. DOSE REPORTED AS 14 TABLETS/DAY
     Route: 048
     Dates: start: 20100401

REACTIONS (1)
  - EPILEPSY [None]
